FAERS Safety Report 14562477 (Version 1)
Quarter: 2018Q1

REPORT INFORMATION
  Report Type: Spontaneous
  Country: CH (occurrence: CH)
  Receive Date: 20180222
  Receipt Date: 20180222
  Transmission Date: 20180509
  Serious: Yes (Other)
  Sender: FDA-Public Use
  Company Number: CH-B. BRAUN MEDICAL INC.-2042447

PATIENT
  Age: 60 Year
  Sex: Male

DRUGS (11)
  1. HEPARIN SODIUM AND DEXTROSE [Suspect]
     Active Substance: HEPARIN SODIUM
     Route: 042
     Dates: start: 20180110, end: 20180124
  2. TOREM (TORASEMIDE) [Concomitant]
     Active Substance: TORSEMIDE
     Route: 048
  3. SENNA ALEXANDRINA FRUIT POWDER [Concomitant]
     Route: 048
     Dates: end: 20180107
  4. DAFALGAN (PARACETAMOL) [Concomitant]
     Route: 048
     Dates: end: 20180107
  5. REMERON [Concomitant]
     Active Substance: MIRTAZAPINE
     Route: 048
  6. POTASSIUM BICARBONATE. [Concomitant]
     Active Substance: POTASSIUM BICARBONATE
     Route: 048
     Dates: end: 20180108
  7. LORAZEPAM. [Concomitant]
     Active Substance: LORAZEPAM
     Route: 048
     Dates: end: 20180108
  8. CORDARONE COMPRIMES [Concomitant]
     Route: 048
  9. PANTOPRAZOLE SODIUM SESQUIHYDRATE [Concomitant]
     Active Substance: PANTOPRAZOLE SODIUM
     Route: 042
  10. ASPIRIN CARDIO 100 FILMTABLETTEN [Concomitant]
     Active Substance: ASPIRIN
     Route: 048
  11. LEVOTHYROXINE SODIUM. [Concomitant]
     Active Substance: LEVOTHYROXINE SODIUM
     Route: 048

REACTIONS (2)
  - Hyperkalaemia [None]
  - Metabolic acidosis [None]
